FAERS Safety Report 7315063-3 (Version None)
Quarter: 2011Q1

REPORT INFORMATION
  Report Type: 
  Country: None (occurrence: None)
  Receive Date: 20110225
  Receipt Date: 20100412
  Transmission Date: 20110831
  Serious: No
  Sender: FDA-Public Use
  Company Number: US-MYLANLABS-2010S1005126

PATIENT
  Age: 18 Year
  Sex: Female

DRUGS (2)
  1. YAZ /01502501/ [Concomitant]
  2. AMNESTEEM [Suspect]
     Indication: ACNE
     Route: 048
     Dates: start: 20091015, end: 20100201

REACTIONS (3)
  - MOOD SWINGS [None]
  - ANGER [None]
  - IMPATIENCE [None]
